FAERS Safety Report 8611413-6 (Version None)
Quarter: 2012Q3

REPORT INFORMATION
  Report Type: 
  Country: None (occurrence: None)
  Receive Date: 20120822
  Receipt Date: 20120813
  Transmission Date: 20120928
  Serious: Yes (Other)
  Sender: FDA-Public Use
  Company Number: US-ASTRAZENECA-2012SE26343

PATIENT
  Age: 54 Year
  Sex: Male
  Weight: 105.2 kg

DRUGS (8)
  1. SEROQUEL XR [Suspect]
     Indication: ANXIETY
     Route: 048
  2. ALPRAZOLAM [Concomitant]
     Indication: ANXIETY
  3. FLUTICASONE PROPIONATE/SALMETEROL [Concomitant]
     Indication: ASTHMA
     Dosage: 500/50 1 PUFF BID
  4. NEXIUM [Suspect]
     Indication: GASTROOESOPHAGEAL REFLUX DISEASE
     Route: 048
     Dates: start: 20100101
  5. LISINOPRIL [Concomitant]
     Indication: HYPERTENSION
  6. PROZAC [Concomitant]
     Indication: HYPERTENSION
  7. SEROQUEL XR [Suspect]
     Indication: DEPRESSION
     Route: 048
  8. SINGULAIR [Concomitant]
     Indication: ASTHMA

REACTIONS (7)
  - ASTHMA [None]
  - SUICIDAL BEHAVIOUR [None]
  - HAEMORRHOIDS [None]
  - DRUG DOSE OMISSION [None]
  - SUICIDAL IDEATION [None]
  - DEPRESSION [None]
  - MOOD SWINGS [None]
